FAERS Safety Report 9729474 (Version 2)
Quarter: 2013Q4

REPORT INFORMATION
  Report Type: Spontaneous
  Country: US (occurrence: US)
  Receive Date: 20131204
  Receipt Date: 20131204
  Transmission Date: 20140711
  Serious: No
  Sender: FDA-Public Use
  Company Number: US-GILEAD-2009-0021337

PATIENT
  Sex: Female
  Weight: 84.37 kg

DRUGS (24)
  1. LETAIRIS [Suspect]
     Indication: PULMONARY ARTERIAL HYPERTENSION
     Route: 048
     Dates: start: 20080801
  2. REVATIO [Concomitant]
  3. COUMADIN [Concomitant]
  4. LOFIBRA [Concomitant]
  5. LASIX [Concomitant]
  6. TOPROL [Concomitant]
  7. DEMADEX [Concomitant]
  8. HYZAAR [Concomitant]
  9. COZAAR [Concomitant]
  10. LOPRESSOR [Concomitant]
  11. ASPIRIN [Concomitant]
  12. TRAMADOL [Concomitant]
  13. MIRAPEX [Concomitant]
  14. CELEXA [Concomitant]
  15. PROZAC [Concomitant]
  16. DIAZEPAM [Concomitant]
  17. PROTONIX [Concomitant]
  18. ZANTAC [Concomitant]
  19. ZELNORM [Concomitant]
  20. ZYRTEC [Concomitant]
  21. PREMARIN [Concomitant]
  22. POTASSIUM CHLORIDE [Concomitant]
  23. FERROUS SULFATE [Concomitant]
  24. MULTIVITAMINS [Concomitant]

REACTIONS (2)
  - Dizziness [Unknown]
  - Cardiac function test abnormal [Unknown]
